FAERS Safety Report 4762578-8 (Version None)
Quarter: 2005Q3

REPORT INFORMATION
  Report Type: 
  Country: None (occurrence: None)
  Receive Date: 20050901
  Receipt Date: 20050614
  Transmission Date: 20060218
  Serious: No
  Sender: FDA-Public Use
  Company Number: 200511209BWH

PATIENT
  Sex: Male

DRUGS (1)
  1. LEVITRA [Suspect]
     Dosage: 20 MG, TOTAL DAILY, ORAL; 30 MG, TOTAL DAILY, ORAL
     Route: 048

REACTIONS (2)
  - DRUG EFFECT DECREASED [None]
  - NO ADVERSE DRUG EFFECT [None]
